FAERS Safety Report 17416508 (Version 1)
Quarter: 2020Q1

REPORT INFORMATION
  Report Type: Spontaneous
  Country: US (occurrence: US)
  Receive Date: 20200213
  Receipt Date: 20200213
  Transmission Date: 20200409
  Serious: Yes (Other)
  Sender: FDA-Public Use
  Company Number: None

PATIENT
  Age: 41 Year
  Sex: Female
  Weight: 56.25 kg

DRUGS (4)
  1. BOTOX [Concomitant]
     Active Substance: ONABOTULINUMTOXINA
  2. VIT B [Concomitant]
     Active Substance: VITAMIN B
  3. PRISTIQ EXTENDED-RELEASE [Concomitant]
     Active Substance: DESVENLAFAXINE SUCCINATE
  4. EMGALITY [Suspect]
     Active Substance: GALCANEZUMAB-GNLM
     Indication: MIGRAINE
     Dates: start: 20190601, end: 20200101

REACTIONS (5)
  - Injection site swelling [None]
  - Constipation [None]
  - Weight increased [None]
  - Abdominal distension [None]
  - Injection site pain [None]

NARRATIVE: CASE EVENT DATE: 20200213
